FAERS Safety Report 18357312 (Version 1)
Quarter: 2020Q4

REPORT INFORMATION
  Report Type: Spontaneous
  Country: MY (occurrence: MY)
  Receive Date: 20201007
  Receipt Date: 20201007
  Transmission Date: 20210114
  Serious: Yes (Death)
  Sender: FDA-Public Use
  Company Number: MY-PFIZER INC-2020382378

PATIENT
  Age: 60 Year
  Sex: Male

DRUGS (2)
  1. VFEND [Suspect]
     Active Substance: VORICONAZOLE
     Indication: ASPERGILLUS INFECTION
  2. VFEND [Suspect]
     Active Substance: VORICONAZOLE
     Indication: PNEUMONITIS
     Dosage: UNK
     Dates: start: 20200926

REACTIONS (1)
  - Death [Fatal]

NARRATIVE: CASE EVENT DATE: 20201002
